FAERS Safety Report 10659985 (Version 3)
Quarter: 2014Q4

REPORT INFORMATION
  Report Type: Spontaneous
  Country: US (occurrence: US)
  Receive Date: 20141217
  Receipt Date: 20141230
  Transmission Date: 20150529
  Serious: No
  Sender: FDA-Public Use
  Company Number: US-GLAXOSMITHKLINE-A1079267A

PATIENT
  Sex: Female
  Weight: 88.2 kg

DRUGS (6)
  1. AMLODIPINE [Concomitant]
     Active Substance: AMLODIPINE BESYLATE
  2. VOTRIENT [Suspect]
     Active Substance: PAZOPANIB HYDROCHLORIDE
     Indication: LEIOMYOSARCOMA
     Dosage: UNK
  3. LISINOPRIL. [Concomitant]
     Active Substance: LISINOPRIL
  4. VOTRIENT [Suspect]
     Active Substance: PAZOPANIB HYDROCHLORIDE
     Indication: NON-SMALL CELL LUNG CANCER
     Dosage: 200 MG, Z
     Route: 048
     Dates: start: 20140523
  5. MULTIVITAMIN [Concomitant]
     Active Substance: VITAMINS
  6. VOTRIENT [Suspect]
     Active Substance: PAZOPANIB HYDROCHLORIDE
     Dosage: 800 MG, 1D
     Route: 048
     Dates: start: 20140523

REACTIONS (8)
  - Eye swelling [Unknown]
  - Lacrimation increased [Unknown]
  - Blood pressure increased [Unknown]
  - Diarrhoea [Unknown]
  - Feeling hot [Unknown]
  - Hepatic enzyme increased [Unknown]
  - Pancreatic enzymes increased [Unknown]
  - Swelling face [Unknown]
